FAERS Safety Report 4560058-6 (Version None)
Quarter: 2005Q1

REPORT INFORMATION
  Report Type: 
  Country: None (occurrence: None)
  Receive Date: 20050125
  Receipt Date: 20050113
  Transmission Date: 20050727
  Serious: Yes (Hospitalization, Other)
  Sender: FDA-Public Use
  Company Number: US-JNJFOC-20040700228

PATIENT
  Sex: Female

DRUGS (24)
  1. INFLIXIMAB [Suspect]
     Indication: RHEUMATOID ARTHRITIS
     Route: 042
     Dates: start: 20010416, end: 20031001
  2. METHOTREXATE [Concomitant]
  3. VIOXX [Concomitant]
  4. WELLBUTRIN [Concomitant]
  5. INSULIN [Concomitant]
  6. METFORMIN HCL [Concomitant]
  7. ARAVA [Concomitant]
  8. ACCUPRIL [Concomitant]
  9. PRILOSEC [Concomitant]
  10. LIPITOR [Concomitant]
  11. CELEXA [Concomitant]
  12. DETROL LA [Concomitant]
  13. BENTYL [Concomitant]
     Dosage: 10 MG, 2-4 TIMES DAILY
  14. IRON [Concomitant]
  15. OXYCODONE HCL [Concomitant]
  16. OXY IR [Concomitant]
  17. MULTI-VITAMIN [Concomitant]
  18. MULTI-VITAMIN [Concomitant]
  19. MULTI-VITAMIN [Concomitant]
  20. MULTI-VITAMIN [Concomitant]
  21. MULTI-VITAMIN [Concomitant]
  22. MULTI-VITAMIN [Concomitant]
  23. MULTI-VITAMIN [Concomitant]
  24. MULTI-VITAMIN [Concomitant]

REACTIONS (10)
  - ARTHRITIS INFECTIVE [None]
  - ENTEROCOCCAL INFECTION [None]
  - HAEMATOMA [None]
  - HIP SURGERY [None]
  - IMPAIRED HEALING [None]
  - PATHOGEN RESISTANCE [None]
  - POSTOPERATIVE INFECTION [None]
  - STAPHYLOCOCCAL INFECTION [None]
  - URINARY TRACT INFECTION [None]
  - URINARY TRACT INFECTION ENTEROCOCCAL [None]
